FAERS Safety Report 8239875-7 (Version None)
Quarter: 2012Q1

REPORT INFORMATION
  Report Type: 
  Country: None (occurrence: None)
  Receive Date: 20120328
  Receipt Date: 20120322
  Transmission Date: 20120608
  Serious: Yes (Other)
  Sender: FDA-Public Use
  Company Number: PHHY2012BR025437

PATIENT
  Age: 23 Year
  Sex: Male

DRUGS (3)
  1. TEGRETOL [Suspect]
     Indication: CONVULSION
     Dosage: 2 DF, DAILY
  2. CLONAZEPAM [Concomitant]
  3. TRILEPTAL [Suspect]
     Dosage: 1 DF, DAILY

REACTIONS (3)
  - ATTENTION DEFICIT/HYPERACTIVITY DISORDER [None]
  - DEPRESSION [None]
  - GENERALISED ANXIETY DISORDER [None]
